FAERS Safety Report 6020368-2 (Version None)
Quarter: 2008Q4

REPORT INFORMATION
  Report Type: 
  Country: None (occurrence: None)
  Receive Date: 20081226
  Receipt Date: 20081216
  Transmission Date: 20090506
  Serious: Yes (Hospitalization)
  Sender: FDA-Public Use
  Company Number: US-MERCK-0812USA03365

PATIENT
  Sex: Male

DRUGS (1)
  1. INVANZ [Suspect]
     Indication: ABDOMINAL INFECTION
     Route: 065

REACTIONS (2)
  - ADVERSE EVENT [None]
  - DRUG INEFFECTIVE [None]
